FAERS Safety Report 19252022 (Version 1)
Quarter: 2021Q2

REPORT INFORMATION
  Report Type: Spontaneous
  Country: US (occurrence: US)
  Receive Date: 20210512
  Receipt Date: 20210512
  Transmission Date: 20210717
  Serious: No
  Sender: FDA-Public Use
  Company Number: None

PATIENT
  Age: 59 Year
  Sex: Female
  Weight: 66.6 kg

DRUGS (6)
  1. VITAMIN D [Concomitant]
     Active Substance: VITAMIN D NOS
  2. RITUXAN [Suspect]
     Active Substance: RITUXIMAB
     Indication: POLYMYOSITIS
     Dosage: ?          QUANTITY:2 INFUSED DRUG;OTHER FREQUENCY:EVERY OTHER WEEK;?
     Route: 042
  3. PREDNISONE. [Concomitant]
     Active Substance: PREDNISONE
  4. LEVOTHYROXINE. [Concomitant]
     Active Substance: LEVOTHYROXINE
  5. VITAMIN A [Concomitant]
     Active Substance: VITAMIN A
  6. RITUXAN [Suspect]
     Active Substance: RITUXIMAB
     Indication: RHEUMATOID ARTHRITIS
     Dosage: ?          QUANTITY:2 INFUSED DRUG;OTHER FREQUENCY:EVERY OTHER WEEK;?
     Route: 042

REACTIONS (2)
  - Lip swelling [None]
  - Oral mucosal eruption [None]

NARRATIVE: CASE EVENT DATE: 20200601
